FAERS Safety Report 9081203 (Version 1)
Quarter: 2013Q1

REPORT INFORMATION
  Report Type: Report from Study
  Country: US (occurrence: US)
  Receive Date: 20130130
  Receipt Date: 20130130
  Transmission Date: 20140127
  Serious: No
  Sender: FDA-Public Use
  Company Number: US-ABBOTT-12P-163-0963505-00

PATIENT
  Age: 42 Year
  Sex: Male

DRUGS (4)
  1. HUMIRA 40 MG/0.8 ML PEN [Suspect]
     Indication: CROHN^S DISEASE
     Dates: start: 20120626, end: 20120917
  2. HUMIRA 40 MG/0.8 ML PEN [Suspect]
     Dates: start: 20120917
  3. AUGMENTIN [Concomitant]
     Indication: LOCALISED INFECTION
     Dosage: 500MG DAILY
     Route: 048
  4. CODEINE SULFATE [Concomitant]
     Indication: PAIN
     Dosage: 30MG DAILY
     Route: 048

REACTIONS (4)
  - Injection site pain [Recovered/Resolved]
  - Injection site haemorrhage [Not Recovered/Not Resolved]
  - Injection site pain [Not Recovered/Not Resolved]
  - Rash papular [Not Recovered/Not Resolved]
